FAERS Safety Report 9535881 (Version 1)
Quarter: 2013Q2

REPORT INFORMATION
  Report Type: Spontaneous
  Country: US (occurrence: None)
  Receive Date: 20130507
  Receipt Date: 20130507
  Transmission Date: 20140414
  Serious: Yes (Other)
  Sender: FDA-Public Use
  Company Number: PHEH2013US004275

PATIENT
  Age: 54 Year
  Sex: Female

DRUGS (5)
  1. AFINITOR [Suspect]
     Indication: TUBEROUS SCLEROSIS
     Route: 048
     Dates: start: 201211
  2. SYNTHROID (LEVOTHYROXINE SODIUM) [Concomitant]
  3. CALCIUM (CALCIUM) [Concomitant]
  4. CALCITRIOL (CALCITRIOL) [Concomitant]
  5. RITALIN (METHYPHENIDATE HYDROCHLORIDE) [Concomitant]

REACTIONS (2)
  - Anxiety [None]
  - Fatigue [None]
